FAERS Safety Report 9928689 (Version 1)
Quarter: 2014Q1

REPORT INFORMATION
  Report Type: Spontaneous
  Country: DK (occurrence: None)
  Receive Date: 20140224
  Receipt Date: 20140224
  Transmission Date: 20141002
  Serious: Yes (Death)
  Sender: FDA-Public Use
  Company Number: 2014P1001362

PATIENT
  Sex: 0

DRUGS (2)
  1. OLANZAPINE [Suspect]
  2. RISPERIDONE [Concomitant]

REACTIONS (6)
  - Dysphagia [None]
  - Consciousness fluctuating [None]
  - Neuroleptic malignant syndrome [None]
  - Disease complication [None]
  - Cerebellar haemorrhage [None]
  - Sepsis [None]
